FAERS Safety Report 22699893 (Version 12)
Quarter: 2023Q4

REPORT INFORMATION
  Report Type: Spontaneous
  Country: CA (occurrence: CA)
  Receive Date: 20230713
  Receipt Date: 20231031
  Transmission Date: 20240110
  Serious: Yes (Other)
  Sender: FDA-Public Use
  Company Number: CA-PFIZER INC-202300211709

PATIENT
  Age: 7 Year
  Sex: Female
  Weight: 30 kg

DRUGS (13)
  1. ABRILADA [Suspect]
     Active Substance: ADALIMUMAB-AFZB
     Indication: Colitis ulcerative
     Dosage: 80 MG(1DF) WEEK 0, 40 MG WEEK 2 THEN 20 MG EVERY 2 WEEKS
     Route: 058
     Dates: start: 20230531, end: 20230614
  2. ABRILADA [Suspect]
     Active Substance: ADALIMUMAB-AFZB
     Dosage: 80 MG WEEK 0, 40 MG WEEK 2 THEN 20 MG EVERY 2 WEEKS
     Route: 058
     Dates: start: 20230614
  3. ABRILADA [Suspect]
     Active Substance: ADALIMUMAB-AFZB
     Dosage: 40 MG, WEEKLY
     Route: 058
     Dates: start: 20230623
  4. ABRILADA [Suspect]
     Active Substance: ADALIMUMAB-AFZB
     Dosage: 40 MG, WEEKLY (AFTER 1 WEEK)
     Route: 058
     Dates: start: 20230629
  5. ABRILADA [Suspect]
     Active Substance: ADALIMUMAB-AFZB
     Dosage: 40 MG, WEEKLY (AFTER 1 WEEK)
     Route: 058
     Dates: start: 20230712
  6. ABRILADA [Suspect]
     Active Substance: ADALIMUMAB-AFZB
     Dosage: 40 MG 1 WEEK
     Route: 058
     Dates: start: 20230719
  7. ABRILADA [Suspect]
     Active Substance: ADALIMUMAB-AFZB
     Dosage: 40 MG 1 WEEK
     Route: 058
     Dates: start: 20230725
  8. ABRILADA [Suspect]
     Active Substance: ADALIMUMAB-AFZB
     Dosage: 40 MG, WEEKLY
     Route: 058
     Dates: start: 20230804
  9. ABRILADA [Suspect]
     Active Substance: ADALIMUMAB-AFZB
     Dosage: 40 MG, WEEKLY
     Route: 058
     Dates: start: 20230811
  10. ABRILADA [Suspect]
     Active Substance: ADALIMUMAB-AFZB
     Dosage: 40 MG, WEEKLY
     Route: 058
     Dates: start: 20230912
  11. ABRILADA [Suspect]
     Active Substance: ADALIMUMAB-AFZB
     Dosage: 40 MG, WEEKLY
     Route: 058
     Dates: start: 20230919
  12. ABRILADA [Suspect]
     Active Substance: ADALIMUMAB-AFZB
     Dosage: 40 MG, WEEKLY
     Route: 058
     Dates: start: 20230926
  13. ABRILADA [Suspect]
     Active Substance: ADALIMUMAB-AFZB
     Dosage: 40 MG EVERY 7 DAYS
     Route: 058

REACTIONS (24)
  - Hypothermia [Recovered/Resolved]
  - Hyperthermia [Recovered/Resolved]
  - Haemorrhage [Not Recovered/Not Resolved]
  - Therapeutic response shortened [Unknown]
  - Off label use [Unknown]
  - Rash [Not Recovered/Not Resolved]
  - Condition aggravated [Not Recovered/Not Resolved]
  - Lymphadenopathy [Not Recovered/Not Resolved]
  - Ocular hyperaemia [Not Recovered/Not Resolved]
  - Cough [Not Recovered/Not Resolved]
  - Bronchitis [Recovering/Resolving]
  - Productive cough [Recovering/Resolving]
  - Sputum discoloured [Recovering/Resolving]
  - Conjunctivitis [Not Recovered/Not Resolved]
  - Vaginal infection [Not Recovered/Not Resolved]
  - Pruritus [Not Recovered/Not Resolved]
  - Scratch [Not Recovered/Not Resolved]
  - Irritability [Not Recovered/Not Resolved]
  - Aggression [Not Recovered/Not Resolved]
  - Vulvitis [Not Recovered/Not Resolved]
  - Fatigue [Not Recovered/Not Resolved]
  - Infection [Unknown]
  - Angular cheilitis [Not Recovered/Not Resolved]
  - Headache [Recovered/Resolved]

NARRATIVE: CASE EVENT DATE: 20230101
